FAERS Safety Report 16706655 (Version 1)
Quarter: 2019Q3

REPORT INFORMATION
  Report Type: Spontaneous
  Country: US (occurrence: US)
  Receive Date: 20190815
  Receipt Date: 20190815
  Transmission Date: 20191004
  Serious: No
  Sender: FDA-Public Use
  Company Number: US-PACIRA-201800063

PATIENT

DRUGS (2)
  1. EXPAREL [Suspect]
     Active Substance: BUPIVACAINE
     Indication: NERVE BLOCK
     Dosage: 133 MG, 10 ML
  2. BUPIVACAINE. [Concomitant]
     Active Substance: BUPIVACAINE
     Indication: NERVE BLOCK
     Dosage: 6 ML WITH EPINEPHRINE 1:200,000

REACTIONS (2)
  - Labelled drug-drug interaction medication error [Unknown]
  - Drug ineffective [Unknown]
